FAERS Safety Report 20901483 (Version 1)
Quarter: 2022Q2

REPORT INFORMATION
  Report Type: Spontaneous
  Country: US (occurrence: None)
  Receive Date: 20220601
  Receipt Date: 20220601
  Transmission Date: 20220721
  Serious: Yes (Disabling)
  Sender: FDA-Public Use
  Company Number: None

PATIENT
  Age: 63 Year
  Sex: Male
  Weight: 76.5 kg

DRUGS (11)
  1. DEXLANSOPRAZOLE [Suspect]
     Active Substance: DEXLANSOPRAZOLE
     Indication: Gastrooesophageal reflux disease
     Dosage: OTHER QUANTITY : 1 CAPSULE(S);?
     Dates: start: 20220304, end: 20220508
  2. NEXIUM [Concomitant]
     Active Substance: ESOMEPRAZOLE MAGNESIUM
  3. FLUTICASONE [Concomitant]
     Active Substance: FLUTICASONE
  4. ASPIRIN [Concomitant]
     Active Substance: ASPIRIN
  5. LISINOPRIL [Concomitant]
     Active Substance: LISINOPRIL
  6. LYRICA [Concomitant]
     Active Substance: PREGABALIN
  7. SINGULAIR [Concomitant]
     Active Substance: MONTELUKAST SODIUM
  8. VITAMINS [Concomitant]
     Active Substance: VITAMINS
  9. MAGNESIUM [Concomitant]
     Active Substance: MAGNESIUM
  10. ZYRTEC [Concomitant]
     Active Substance: CETIRIZINE HYDROCHLORIDE
  11. MYRALAX [Concomitant]

REACTIONS (5)
  - Confusional state [None]
  - Vision blurred [None]
  - Rash [None]
  - Muscle contractions involuntary [None]
  - Panic attack [None]

NARRATIVE: CASE EVENT DATE: 20220321
